FAERS Safety Report 7560226-5 (Version None)
Quarter: 2011Q2

REPORT INFORMATION
  Report Type: 
  Country: None (occurrence: None)
  Receive Date: 20110614
  Receipt Date: 20110601
  Transmission Date: 20111010
  Serious: Yes (Hospitalization, Other)
  Sender: FDA-Public Use
  Company Number: 2011MA006667

PATIENT
  Age: 76 Year
  Sex: Male

DRUGS (1)
  1. METFORMIN HYDROCHLORIDE [Suspect]
     Indication: TYPE 2 DIABETES MELLITUS

REACTIONS (6)
  - DIARRHOEA [None]
  - HYPOTHERMIA [None]
  - VOMITING [None]
  - LACTIC ACIDOSIS [None]
  - RENAL FAILURE [None]
  - HAEMODIALYSIS [None]
